FAERS Safety Report 5286357-0 (Version None)
Quarter: 2007Q2

REPORT INFORMATION
  Report Type: 
  Country: None (occurrence: None)
  Receive Date: 20070404
  Receipt Date: 20070323
  Transmission Date: 20071010
  Serious: Yes (Death)
  Sender: FDA-Public Use
  Company Number: HQWYE052129MAR07

PATIENT
  Age: 70 Year
  Sex: Male

DRUGS (6)
  1. TYGACIL [Suspect]
     Indication: CATHETER SEPSIS
     Dosage: 100 MG INITIAL DOSE THEN 50 MG EVERY 12 HOURS
     Route: 042
     Dates: start: 20070315, end: 20070316
  2. TYGACIL [Suspect]
     Indication: STAPHYLOCOCCAL SEPSIS
     Route: 042
     Dates: start: 20070316, end: 20070322
  3. DALTEPARIN SODIUM [Concomitant]
  4. FENTANYL [Concomitant]
  5. MIDAZOLAM HCL [Concomitant]
  6. FLUCONAZOLE [Concomitant]

REACTIONS (1)
  - THROMBOCYTOPENIA [None]
